FAERS Safety Report 6154526-3 (Version None)
Quarter: 2009Q2

REPORT INFORMATION
  Report Type: 
  Country: None (occurrence: None)
  Receive Date: 20090414
  Receipt Date: 20090403
  Transmission Date: 20091009
  Serious: Yes (Death, Other)
  Sender: FDA-Public Use
  Company Number: AT-CELGENEUS-009-20785-09040557

PATIENT

DRUGS (6)
  1. THALOMID [Suspect]
     Indication: MULTIPLE MYELOMA
     Dosage: 50MG - 400MG
     Route: 048
  2. DEXAMETHASONE 4MG TAB [Suspect]
     Indication: MULTIPLE MYELOMA
     Route: 065
  3. MELPHALAN [Suspect]
     Indication: MULTIPLE MYELOMA
     Route: 065
  4. PREDNISOLONE [Suspect]
     Indication: MULTIPLE MYELOMA
     Route: 048
  5. LMWH [Concomitant]
     Indication: PROPHYLAXIS
     Route: 065
  6. ZOLEDRONIC ACID [Concomitant]
     Indication: DRUG USE FOR UNKNOWN INDICATION
     Dosage: 4MG IN 4 WEEKLY INTERVALS

REACTIONS (31)
  - ALOPECIA [None]
  - ANAEMIA [None]
  - BLOOD CREATININE INCREASED [None]
  - CARDIOTOXICITY [None]
  - CARDIOVASCULAR DISORDER [None]
  - CONSTIPATION [None]
  - DEATH [None]
  - DEEP VEIN THROMBOSIS [None]
  - DIARRHOEA [None]
  - DYSPNOEA [None]
  - FATIGUE [None]
  - GLAUCOMA [None]
  - HAEMORRHAGE [None]
  - HYPERGLYCAEMIA [None]
  - HYPERTENSION [None]
  - ILEUS [None]
  - INFECTION [None]
  - LEUKOPENIA [None]
  - MENTAL DISORDER [None]
  - MULTIPLE MYELOMA [None]
  - NAUSEA [None]
  - NEOPLASM MALIGNANT [None]
  - NEUROPATHY PERIPHERAL [None]
  - OEDEMA [None]
  - OSTEONECROSIS [None]
  - PULMONARY EMBOLISM [None]
  - PULMONARY OEDEMA [None]
  - RASH [None]
  - SEPSIS [None]
  - THROMBOCYTOPENIA [None]
  - VOMITING [None]
